FAERS Safety Report 21646899 (Version 1)
Quarter: 2022Q4

REPORT INFORMATION
  Report Type: Spontaneous
  Country: CA (occurrence: CA)
  Receive Date: 20221127
  Receipt Date: 20221127
  Transmission Date: 20230112
  Serious: Yes (Other)
  Sender: FDA-Public Use
  Company Number: CA-TEVA-2022-CA-2829124

PATIENT
  Age: 64 Year
  Sex: Female

DRUGS (1)
  1. NYSTATIN [Suspect]
     Active Substance: NYSTATIN
     Indication: Product used for unknown indication
     Route: 048

REACTIONS (14)
  - Swelling face [Unknown]
  - Swollen tongue [Unknown]
  - Deformity [Unknown]
  - Facial pain [Unknown]
  - Oropharyngeal pain [Unknown]
  - Glossodynia [Unknown]
  - Pharyngeal swelling [Unknown]
  - Fatigue [Unknown]
  - Headache [Unknown]
  - Insomnia [Unknown]
  - Skin discolouration [Unknown]
  - Skin warm [Unknown]
  - Dysphonia [Unknown]
  - Drug hypersensitivity [Unknown]
